FAERS Safety Report 6568339-1 (Version None)
Quarter: 2010Q1

REPORT INFORMATION
  Report Type: 
  Country: None (occurrence: None)
  Receive Date: 20100128
  Receipt Date: 20100115
  Transmission Date: 20100710
  Serious: Yes (Death, Disabling)
  Sender: FDA-Public Use
  Company Number: 1-21330934

PATIENT
  Sex: Male

DRUGS (1)
  1. FENTANYL-25 [Suspect]
     Indication: PAIN
     Dosage: TRANSDERMAL
     Route: 062
     Dates: end: 20080106

REACTIONS (5)
  - ANXIETY [None]
  - DEFORMITY [None]
  - DRUG TOXICITY [None]
  - OVERDOSE [None]
  - PAIN [None]
